FAERS Safety Report 5443482-9 (Version None)
Quarter: 2007Q3

REPORT INFORMATION
  Report Type: 
  Country: None (occurrence: None)
  Receive Date: 20070905
  Receipt Date: 20070827
  Transmission Date: 20080115
  Serious: Yes (Hospitalization)
  Sender: FDA-Public Use
  Company Number: JP-ROCHE-494476

PATIENT
  Age: 9 Year
  Sex: Male
  Weight: 38 kg

DRUGS (5)
  1. TAMIFLU [Suspect]
     Dosage: FORM DRY SYRUP.
     Route: 048
     Dates: start: 20070419, end: 20070419
  2. CALONAL [Concomitant]
     Dosage: ORAL FORMULATION NOT OTHERWISE SPECIFIED
     Route: 065
     Dates: start: 20070420, end: 20070424
  3. CHLOPHEDRIN [Concomitant]
     Dosage: ORAL FORMULATION NOT OTHERWISE SPECIFIED
     Route: 048
     Dates: start: 20070419, end: 20070421
  4. 1 CONCOMITANT DRUG [Concomitant]
     Dosage: DRUG NAME REPORTED: HEAVEN
     Route: 048
     Dates: start: 20070419, end: 20070420
  5. PONTAL [Concomitant]
     Route: 048
     Dates: start: 20070419, end: 20070420

REACTIONS (2)
  - ABNORMAL BEHAVIOUR [None]
  - HALLUCINATION, VISUAL [None]
